FAERS Safety Report 8540298-1 (Version None)
Quarter: 2012Q3

REPORT INFORMATION
  Report Type: 
  Country: None (occurrence: None)
  Receive Date: 20120713
  Receipt Date: 20120628
  Transmission Date: 20120928
  Serious: Yes (Other)
  Sender: FDA-Public Use
  Company Number: 2012HGS-003529

PATIENT
  Age: 42 Year
  Sex: Female
  Weight: 77.4 kg

DRUGS (7)
  1. NEXIUM [Concomitant]
  2. BENLYSTA [Suspect]
     Indication: SYSTEMIC LUPUS ERYTHEMATOSUS
     Dosage: 1 IN 4 WK, INTRAVENOUS DRIP
     Route: 041
     Dates: start: 20120118
  3. OXYCONTIN (OXYCODONE HYDROCHLORIDE) (OXYCODONE HYDROCHLORIDE) [Concomitant]
  4. MELOXICAM [Concomitant]
  5. FLUCONAZOLE [Concomitant]
  6. IBUPROFEN TABLETS [Concomitant]
  7. MODAFINIL (MODAFINIL) (MODAFINIL) [Concomitant]

REACTIONS (10)
  - GAMMA-GLUTAMYLTRANSFERASE INCREASED [None]
  - ABDOMINAL PAIN UPPER [None]
  - MORBID THOUGHTS [None]
  - GOITRE [None]
  - HAEMORRHAGIC CYST [None]
  - ASPARTATE AMINOTRANSFERASE INCREASED [None]
  - BLOOD ACID PHOSPHATASE INCREASED [None]
  - LYMPHADENOPATHY [None]
  - PYREXIA [None]
  - HALLUCINATION [None]
